FAERS Safety Report 25626720 (Version 2)
Quarter: 2025Q3

REPORT INFORMATION
  Report Type: Spontaneous
  Country: GB (occurrence: GB)
  Receive Date: 20250731
  Receipt Date: 20250811
  Transmission Date: 20251020
  Serious: Yes (Life-Threatening, Hospitalization, Other)
  Sender: GALPHARM INTERNATIONAL
  Company Number: None

PATIENT
  Age: 20 Year
  Sex: Female
  Weight: 62 kg

DRUGS (2)
  1. IBUPROFEN [Suspect]
     Active Substance: IBUPROFEN
     Indication: Ill-defined disorder
     Route: 065
  2. CETRABEN EMOLLIENT BATH ADDITIVE [Concomitant]
     Indication: Ill-defined disorder
     Route: 065
     Dates: start: 20231115

REACTIONS (1)
  - Oral mucosal blistering [Recovered/Resolved]
